FAERS Safety Report 8137473-7 (Version None)
Quarter: 2012Q1

REPORT INFORMATION
  Report Type: 
  Country: None (occurrence: None)
  Receive Date: 20120213
  Receipt Date: 20120204
  Transmission Date: 20120608
  Serious: Yes (Other)
  Sender: FDA-Public Use
  Company Number: 2012SP006712

PATIENT
  Sex: Male

DRUGS (3)
  1. PEG-INTRON [Suspect]
     Indication: HEPATITIS C
     Dates: start: 20120111
  2. RIBAVIRIN [Suspect]
     Indication: HEPATITIS C
     Dates: start: 20111130
  3. VICTRELIS [Suspect]
     Indication: HEPATITIS C
     Dates: start: 20120102

REACTIONS (1)
  - CONVULSION [None]
